FAERS Safety Report 9593259 (Version 1)
Quarter: 2013Q4

REPORT INFORMATION
  Report Type: Spontaneous
  Country: US (occurrence: None)
  Receive Date: 20131002
  Receipt Date: 20131002
  Transmission Date: 20140711
  Serious: Yes (Other)
  Sender: FDA-Public Use
  Company Number: SIME20130001

PATIENT
  Age: 21 Day
  Sex: Male

DRUGS (1)
  1. SIMETHICONE [Suspect]
     Indication: ABDOMINAL PAIN
     Dosage: 80 MD 3-4 TIMES PER DAY
     Dates: start: 2013, end: 20130913

REACTIONS (1)
  - Abnormal behaviour [None]
